FAERS Safety Report 10215630 (Version 1)
Quarter: 2014Q2

REPORT INFORMATION
  Report Type: Spontaneous
  Country: US (occurrence: None)
  Receive Date: 20140602
  Receipt Date: 20140602
  Transmission Date: 20141212
  Serious: No
  Sender: FDA-Public Use
  Company Number: None

PATIENT
  Sex: Male
  Weight: 186.88 kg

DRUGS (1)
  1. PHENYTOIN [Suspect]
     Route: 048

REACTIONS (4)
  - Convulsion [None]
  - Condition aggravated [None]
  - Product substitution issue [None]
  - Therapeutic response changed [None]
